FAERS Safety Report 10083511 (Version 1)
Quarter: 2014Q2

REPORT INFORMATION
  Report Type: Spontaneous
  Country: US (occurrence: None)
  Receive Date: 20140416
  Receipt Date: 20140416
  Transmission Date: 20141212
  Serious: Yes (Disabling)
  Sender: FDA-Public Use
  Company Number: None

PATIENT
  Age: 83 Year
  Sex: Female
  Weight: 74.84 kg

DRUGS (1)
  1. WARFARIN [Suspect]
     Indication: EYELID INFECTION
     Dosage: 1/2 PILL (2.5 MG), ONCE DAILY, TAKEN BY MOUTH
     Route: 048
     Dates: start: 20140317, end: 20140327

REACTIONS (2)
  - Eyelid infection [None]
  - Haemarthrosis [None]
